FAERS Safety Report 15940976 (Version 5)
Quarter: 2020Q3

REPORT INFORMATION
  Report Type: Report from Study
  Country: US (occurrence: US)
  Receive Date: 20190208
  Receipt Date: 20200821
  Transmission Date: 20201102
  Serious: Yes (Hospitalization, Other)
  Sender: FDA-Public Use
  Company Number: US-ACTELION-A-NJ2019-185743

PATIENT
  Age: 63 Year
  Sex: Male
  Weight: 70.3 kg

DRUGS (2)
  1. TYVASO [Suspect]
     Active Substance: TREPROSTINIL
     Indication: PRODUCT USED FOR UNKNOWN INDICATION
     Route: 065
  2. OPSUMIT [Suspect]
     Active Substance: MACITENTAN
     Indication: PULMONARY HYPERTENSION
     Dosage: 10 MG, QD
     Route: 048
     Dates: start: 20150724

REACTIONS (23)
  - Haemoglobin decreased [Unknown]
  - Fatigue [Not Recovered/Not Resolved]
  - Dyspnoea exertional [Unknown]
  - Cholelithiasis [Not Recovered/Not Resolved]
  - Fluid retention [Unknown]
  - Ascites [Unknown]
  - Haemoptysis [Unknown]
  - Red blood cell count decreased [Unknown]
  - Oxygen consumption increased [Unknown]
  - White blood cell count decreased [Unknown]
  - Abdominal pain upper [Unknown]
  - Dyspnoea [Unknown]
  - Hospitalisation [Not Recovered/Not Resolved]
  - Platelet count decreased [Unknown]
  - Memory impairment [Unknown]
  - Abdominal pain [Not Recovered/Not Resolved]
  - Abdominal cavity drainage [Not Recovered/Not Resolved]
  - Product dose omission issue [Unknown]
  - Oesophageal disorder [Unknown]
  - Paracentesis [Unknown]
  - Asthenia [Not Recovered/Not Resolved]
  - Condition aggravated [Unknown]
  - Oropharyngeal pain [Unknown]

NARRATIVE: CASE EVENT DATE: 20190123
